FAERS Safety Report 5282176-X (Version None)
Quarter: 2007Q1

REPORT INFORMATION
  Report Type: 
  Country: None (occurrence: None)
  Receive Date: 20070330
  Receipt Date: 20070320
  Transmission Date: 20070707
  Serious: Yes (Death, Other)
  Sender: FDA-Public Use
  Company Number: ES-PFIZER INC-2007009855

PATIENT
  Age: 75 Year
  Sex: Male

DRUGS (3)
  1. NEURONTIN [Suspect]
     Route: 048
  2. CARBIDOPA AND LEVODOPA [Suspect]
     Dosage: TEXT:200/50 MG
  3. ESCITALOPRAM [Suspect]

REACTIONS (2)
  - NEUROLEPTIC MALIGNANT SYNDROME [None]
  - RESPIRATORY ARREST [None]
